FAERS Safety Report 16323932 (Version 1)
Quarter: 2019Q2

REPORT INFORMATION
  Report Type: Spontaneous
  Country: DE (occurrence: DE)
  Receive Date: 20190517
  Receipt Date: 20190517
  Transmission Date: 20190711
  Serious: Yes (Other)
  Sender: FDA-Public Use
  Company Number: DE-TEVA-2019-DE-1049720

PATIENT
  Age: 40 Year
  Sex: Female
  Weight: 74 kg

DRUGS (1)
  1. CEFACLOR - CT 500MG HARTKAPSELN [Suspect]
     Active Substance: CEFACLOR
     Dosage: 5 CAPSULES
     Dates: start: 20170913, end: 20170915

REACTIONS (3)
  - Deafness transitory [Recovered/Resolved]
  - Language disorder [Recovered/Resolved]
  - Dizziness [Recovered/Resolved]

NARRATIVE: CASE EVENT DATE: 20170915
